FAERS Safety Report 18018356 (Version 1)
Quarter: 2020Q3

REPORT INFORMATION
  Report Type: Spontaneous
  Country: US (occurrence: US)
  Receive Date: 20200713
  Receipt Date: 20200713
  Transmission Date: 20201103
  Serious: Yes (Other)
  Sender: FDA-Public Use
  Company Number: None

PATIENT
  Age: 36 Year
  Sex: Female
  Weight: 81 kg

DRUGS (1)
  1. NEXT ADVANCED ANTIBACTERIAL HAND SANITIZER [Suspect]
     Active Substance: ALCOHOL
     Indication: POOR SANITATION
     Dosage: ?          QUANTITY:1 SQUIRT;?
     Route: 061
     Dates: start: 20200608, end: 20200609

REACTIONS (2)
  - Vomiting [None]
  - Product odour abnormal [None]

NARRATIVE: CASE EVENT DATE: 20200608
